FAERS Safety Report 9900561 (Version 1)
Quarter: 2014Q1

REPORT INFORMATION
  Report Type: Spontaneous
  Country: US (occurrence: US)
  Receive Date: 20140217
  Receipt Date: 20140217
  Transmission Date: 20141002
  Serious: No
  Sender: FDA-Public Use
  Company Number: US-BIOGENIDEC-2013BI037142

PATIENT
  Age: 57 Year
  Sex: Female

DRUGS (2)
  1. AVONEX [Suspect]
     Indication: MULTIPLE SCLEROSIS
     Route: 030
     Dates: start: 20130308, end: 2013
  2. TECFIDERA [Concomitant]
     Route: 048
     Dates: start: 2013

REACTIONS (2)
  - Adverse event [Recovered/Resolved]
  - Influenza like illness [Recovered/Resolved]
